FAERS Safety Report 15044183 (Version 3)
Quarter: 2018Q3

REPORT INFORMATION
  Report Type: Spontaneous
  Country: JP (occurrence: JP)
  Receive Date: 20180621
  Receipt Date: 20180706
  Transmission Date: 20181010
  Serious: Yes (Hospitalization, Other)
  Sender: FDA-Public Use
  Company Number: JP-GLAXOSMITHKLINE-JP2018JPN106390

PATIENT
  Age: 34 Year
  Sex: Female

DRUGS (3)
  1. TADALAFIL [Concomitant]
     Active Substance: TADALAFIL
     Dosage: UNK
  2. FLOLAN [Suspect]
     Active Substance: EPOPROSTENOL SODIUM
     Indication: PULMONARY ARTERIAL HYPERTENSION
     Dosage: UNK
     Route: 042
  3. VOLIBRIS [Suspect]
     Active Substance: AMBRISENTAN
     Indication: PULMONARY ARTERIAL HYPERTENSION
     Dosage: UNK
     Route: 048

REACTIONS (4)
  - Exposure during pregnancy [Unknown]
  - Pulmonary oedema [Recovering/Resolving]
  - Pulmonary vein occlusion [Unknown]
  - Premature delivery [Unknown]
